FAERS Safety Report 8237211-3 (Version None)
Quarter: 2012Q1

REPORT INFORMATION
  Report Type: 
  Country: None (occurrence: None)
  Receive Date: 20120327
  Receipt Date: 20120327
  Transmission Date: 20120608
  Serious: Yes (Hospitalization)
  Sender: FDA-Public Use
  Company Number: None

PATIENT
  Age: 70 Year
  Sex: Female

DRUGS (9)
  1. RIVASTIGMINE [Suspect]
     Indication: DEMENTIA
     Dosage: 4.6MG
     Route: 061
  2. ZYRTEC [Concomitant]
  3. CALCIUM W/D [Concomitant]
  4. LORAZEPAM [Concomitant]
  5. PEPCID [Concomitant]
  6. CELEBREX [Concomitant]
  7. NEURONTIN [Concomitant]
  8. ZOFRAN [Concomitant]
  9. ZOLOFT [Concomitant]

REACTIONS (2)
  - BRADYCARDIA [None]
  - SYNCOPE [None]
